FAERS Safety Report 18664819 (Version 2)
Quarter: 2021Q1

REPORT INFORMATION
  Report Type: Spontaneous
  Country: FR (occurrence: FR)
  Receive Date: 20201225
  Receipt Date: 20210303
  Transmission Date: 20210419
  Serious: Yes (Other)
  Sender: FDA-Public Use
  Company Number: FR-SHILPA MEDICARE LIMITED-SML-FR-2020-00886

PATIENT
  Sex: Female

DRUGS (2)
  1. ERLOTINIB, UNKNOWN [Suspect]
     Active Substance: ERLOTINIB
     Indication: LUNG ADENOCARCINOMA STAGE IV
     Route: 065
  2. CRIZOTINIB [Suspect]
     Active Substance: CRIZOTINIB
     Indication: LUNG ADENOCARCINOMA STAGE IV
     Route: 065

REACTIONS (7)
  - Disease progression [Unknown]
  - Paronychia [Unknown]
  - Rash [Unknown]
  - Drug resistance [Unknown]
  - Diarrhoea [Unknown]
  - Visual impairment [Unknown]
  - Oedema [Unknown]
